FAERS Safety Report 23364802 (Version 1)
Quarter: 2024Q1

REPORT INFORMATION
  Report Type: Report from Study
  Country: US (occurrence: US)
  Receive Date: 20240104
  Receipt Date: 20240104
  Transmission Date: 20240410
  Serious: Yes (Hospitalization, Other)
  Sender: FDA-Public Use
  Company Number: US-ABBVIE-5522308

PATIENT
  Sex: Male

DRUGS (1)
  1. HUMIRA [Suspect]
     Active Substance: ADALIMUMAB
     Indication: Crohn^s disease
     Dosage: CITRATE FREE, FORM STRENGTH: 40MG
     Route: 058
     Dates: start: 20180411

REACTIONS (5)
  - Thrombosis [Unknown]
  - Skin infection [Unknown]
  - Urinary retention [Unknown]
  - Scrotal cyst [Unknown]
  - Localised infection [Unknown]
